FAERS Safety Report 23857528 (Version 1)
Quarter: 2024Q2

REPORT INFORMATION
  Report Type: Spontaneous
  Country: AU (occurrence: AU)
  Receive Date: 20240515
  Receipt Date: 20240515
  Transmission Date: 20240715
  Serious: Yes (Death)
  Sender: FDA-Public Use
  Company Number: AU-CAMURUS AB-AU-CAM-24-00580

PATIENT
  Sex: Female

DRUGS (1)
  1. BUPRENORPHINE [Suspect]
     Active Substance: BUPRENORPHINE
     Indication: Product used for unknown indication
     Dosage: 8 MILLIGRAM, WEEKLY
     Route: 065
     Dates: start: 202111

REACTIONS (3)
  - Brain injury [Fatal]
  - Coronary artery disease [Fatal]
  - Cardiomegaly [Fatal]

NARRATIVE: CASE EVENT DATE: 20211101
